FAERS Safety Report 14739587 (Version 5)
Quarter: 2018Q3

REPORT INFORMATION
  Report Type: Report from Study
  Country: US (occurrence: US)
  Receive Date: 20180410
  Receipt Date: 20180816
  Transmission Date: 20181010
  Serious: Yes (Death, Hospitalization, Other)
  Sender: FDA-Public Use
  Company Number: US-UCBSA-2018014962

PATIENT
  Age: 92 Year
  Sex: Female

DRUGS (2)
  1. LACOSAMIDE. [Suspect]
     Active Substance: LACOSAMIDE
     Indication: PARTIAL SEIZURES
     Dosage: 50 MG, 2X/DAY (BID)
     Route: 048
     Dates: start: 201403, end: 201802
  2. KEPPRA [Suspect]
     Active Substance: LEVETIRACETAM
     Indication: SEIZURE
     Dosage: UNK

REACTIONS (12)
  - Myoclonic epilepsy [Fatal]
  - Cardiac arrest [Fatal]
  - Pulmonary contusion [Unknown]
  - Chest injury [Unknown]
  - Heart rate decreased [Unknown]
  - Neck pain [Unknown]
  - Drug ineffective [Unknown]
  - Hypoxic-ischaemic encephalopathy [Fatal]
  - Seizure [Unknown]
  - Limb injury [Recovered/Resolved]
  - Hypotension [Unknown]
  - Road traffic accident [Recovered/Resolved]

NARRATIVE: CASE EVENT DATE: 2018
